FAERS Safety Report 13366258 (Version 3)
Quarter: 2017Q3

REPORT INFORMATION
  Report Type: Report from Study
  Country: US (occurrence: US)
  Receive Date: 20170323
  Receipt Date: 20170802
  Transmission Date: 20171127
  Serious: Yes (Hospitalization)
  Sender: FDA-Public Use
  Company Number: US-ACTELION-A-NJ2016-132934

PATIENT
  Age: 59 Year
  Sex: Male
  Weight: 77.98 kg

DRUGS (4)
  1. VELETRI [Suspect]
     Active Substance: EPOPROSTENOL
     Dosage: 13 NG/KG, PER MIN
     Route: 042
  2. REVATIO [Concomitant]
     Active Substance: SILDENAFIL CITRATE
  3. VELETRI [Suspect]
     Active Substance: EPOPROSTENOL
     Indication: PULMONARY ARTERIAL HYPERTENSION
     Dosage: 22 NG/KG, UNK
     Route: 042
     Dates: start: 20160304
  4. ADCIRCA [Concomitant]
     Active Substance: TADALAFIL

REACTIONS (15)
  - Abdominal pain upper [Unknown]
  - Fatigue [Unknown]
  - Hypotension [Unknown]
  - Muscle spasms [Unknown]
  - Hernia [Unknown]
  - Headache [Unknown]
  - Myalgia [Unknown]
  - Dyspnoea exertional [Unknown]
  - Pain in jaw [Unknown]
  - Pain [Recovering/Resolving]
  - Nausea [Unknown]
  - Diarrhoea [Unknown]
  - Decreased appetite [Unknown]
  - Inguinal hernia [Unknown]
  - Somnolence [Unknown]
